FAERS Safety Report 7906249-5 (Version None)
Quarter: 2011Q4

REPORT INFORMATION
  Report Type: 
  Country: None (occurrence: None)
  Receive Date: 20111110
  Receipt Date: 20111031
  Transmission Date: 20120403
  Serious: Yes (Hospitalization, Other)
  Sender: FDA-Public Use
  Company Number: US-BAYER-200934526NA

PATIENT
  Age: 62 Year
  Sex: Male
  Weight: 113.83 kg

DRUGS (23)
  1. COUMADIN [Concomitant]
     Dosage: 2 MG
     Route: 048
  2. NITROGLYCERIN [Concomitant]
     Dosage: UNK
     Dates: start: 20060228, end: 20060228
  3. VERSED [Concomitant]
     Dosage: 1.5
     Route: 042
  4. LEXAPRO [Concomitant]
     Indication: DEPRESSION
  5. TRASYLOL [Suspect]
     Dosage: 200 ML THEN 50 ML INFUSION
     Route: 042
     Dates: start: 20060228
  6. LISINOPRIL [Concomitant]
     Dosage: 40 MG
     Route: 048
  7. AMIODARONE HCL [Concomitant]
     Dosage: UNK
     Dates: start: 20060228, end: 20060228
  8. PHENAZOPYRIDINE HCL TAB [Concomitant]
     Dosage: THREE TIMES OF DAY
     Route: 048
  9. TESTOSTERONE [Concomitant]
  10. DOBUTAMINE HCL [Concomitant]
     Dosage: UNK
     Dates: start: 20060228, end: 20060228
  11. NICARDIPINE HCL [Concomitant]
     Dosage: UNK
     Dates: start: 20060228, end: 20060228
  12. VANCOMYCIN [Concomitant]
     Dosage: UNK
     Dates: start: 20060228, end: 20060228
  13. TRASYLOL [Suspect]
     Indication: CORONARY ARTERY BYPASS
     Dosage: 1 ML INITIAL TEST DOSE
     Route: 042
     Dates: start: 20060228
  14. DOXAZOSIN MESYLATE [Concomitant]
     Dosage: 4 MG
     Route: 048
  15. HYDROCHLOROTHIAZIDE [Concomitant]
     Dosage: 25 MG
     Route: 048
  16. CITALOPRAM HYDROBROMIDE [Concomitant]
     Dosage: 40 MG
     Route: 048
  17. FENTANYL-100 [Concomitant]
     Dosage: UNK
     Dates: start: 20060228, end: 20060228
  18. INSULIN [Concomitant]
     Dosage: UNK
     Dates: start: 20060228
  19. NITROFURANTOIN [Concomitant]
     Dosage: 50 MG FOUR TIMES A DAY WITH FOOD
     Route: 048
  20. ACETYLSALICYLIC ACID SRT [Concomitant]
     Dosage: 81 MG
     Route: 048
  21. ATENOLOL [Concomitant]
     Dosage: 25 MG, QD
     Route: 048
  22. SIMVASTATIN [Concomitant]
     Dosage: 40 MG
     Route: 048
  23. HEPARIN [Concomitant]
     Dosage: UNK
     Dates: start: 20060228, end: 20060228

REACTIONS (10)
  - EMOTIONAL DISTRESS [None]
  - INJURY [None]
  - ANXIETY [None]
  - STRESS [None]
  - RENAL IMPAIRMENT [None]
  - RENAL FAILURE [None]
  - RENAL INJURY [None]
  - UNEVALUABLE EVENT [None]
  - FEAR [None]
  - PAIN [None]
